FAERS Safety Report 11567308 (Version 1)
Quarter: 2015Q3

REPORT INFORMATION
  Report Type: Spontaneous
  Country: US (occurrence: US)
  Receive Date: 20150916
  Receipt Date: 20150916
  Transmission Date: 20151125
  Serious: No
  Sender: FDA-Public Use
  Company Number: US-ELI_LILLY_AND_COMPANY-US200907003452

PATIENT
  Sex: Female

DRUGS (7)
  1. FORTEO [Suspect]
     Active Substance: TERIPARATIDE
     Dates: start: 20090716
  2. DARVOCET [Concomitant]
     Active Substance: ACETAMINOPHEN\PROPOXYPHENE HYDROCHLORIDE
  3. LODINE [Concomitant]
     Active Substance: ETODOLAC
  4. SYNTHROID [Concomitant]
     Active Substance: LEVOTHYROXINE SODIUM
  5. CALTRATE [Concomitant]
     Active Substance: CALCIUM CARBONATE
  6. METHOTREXATE [Concomitant]
     Active Substance: METHOTREXATE
  7. XANAX [Concomitant]
     Active Substance: ALPRAZOLAM

REACTIONS (3)
  - Intentional product misuse [Unknown]
  - Accidental overdose [Unknown]
  - Medication error [Unknown]
